FAERS Safety Report 16867473 (Version 1)
Quarter: 2019Q3

REPORT INFORMATION
  Report Type: Report from Study
  Country: None (occurrence: RO)
  Receive Date: 20190930
  Receipt Date: 20190930
  Transmission Date: 20191005
  Serious: Yes (Hospitalization)
  Sender: FDA-Public Use
  Company Number: RO-ABBVIE-19K-135-2941192-00

PATIENT
  Age: 66 Year
  Sex: Female

DRUGS (5)
  1. TERTENSIF [Concomitant]
     Active Substance: INDAPAMIDE
     Indication: HYPERTENSION
     Route: 048
  2. TOLURA [Concomitant]
     Indication: HYPERTENSION
     Route: 048
  3. SULFASALAZINE. [Concomitant]
     Active Substance: SULFASALAZINE
     Indication: OSTEOPOROSIS
     Route: 048
  4. ALPHA D3 [Concomitant]
     Active Substance: ALFACALCIDOL
     Indication: OSTEOPOROSIS
     Route: 048
  5. HUMIRA [Suspect]
     Active Substance: ADALIMUMAB
     Indication: RHEUMATOID ARTHRITIS
     Route: 058
     Dates: start: 20140715

REACTIONS (7)
  - Pyrexia [Recovering/Resolving]
  - Vomiting [Recovering/Resolving]
  - Dysstasia [Recovering/Resolving]
  - Otorrhoea [Recovering/Resolving]
  - Hypophagia [Recovering/Resolving]
  - Chills [Recovering/Resolving]
  - Ear infection [Recovering/Resolving]

NARRATIVE: CASE EVENT DATE: 201909
